FAERS Safety Report 23990301 (Version 1)
Quarter: 2024Q2

REPORT INFORMATION
  Report Type: Spontaneous
  Country: US (occurrence: US)
  Receive Date: 20240619
  Receipt Date: 20240619
  Transmission Date: 20240716
  Serious: Yes (Other)
  Sender: FDA-Public Use
  Company Number: None

PATIENT
  Age: 18 Year
  Sex: Female

DRUGS (3)
  1. AMPHETAMINE [Suspect]
     Active Substance: AMPHETAMINE
     Indication: Attention deficit hyperactivity disorder
  2. AMIODARONE [Suspect]
     Active Substance: AMIODARONE
     Indication: Myocarditis
  3. BUPROPION [Suspect]
     Active Substance: BUPROPION
     Indication: Depression

REACTIONS (2)
  - Condition aggravated [Recovered/Resolved]
  - Electrocardiogram QT prolonged [Recovered/Resolved]
